FAERS Safety Report 6152140-7 (Version None)
Quarter: 2009Q2

REPORT INFORMATION
  Report Type: 
  Country: None (occurrence: None)
  Receive Date: 20090409
  Receipt Date: 20090409
  Transmission Date: 20091009
  Serious: No
  Sender: FDA-Public Use
  Company Number: None

PATIENT
  Sex: Female
  Weight: 98.4306 kg

DRUGS (1)
  1. GLUCOVANCE [Suspect]
     Indication: TYPE 2 DIABETES MELLITUS
     Dosage: ONE TAB THREE TIMES DAILY PO
     Route: 048
     Dates: start: 20011201, end: 20090401

REACTIONS (3)
  - HYPERGLYCAEMIA [None]
  - POLLAKIURIA [None]
  - PRODUCT QUALITY ISSUE [None]
